FAERS Safety Report 24642697 (Version 1)
Quarter: 2024Q4

REPORT INFORMATION
  Report Type: Spontaneous
  Country: US (occurrence: None)
  Receive Date: 20241120
  Receipt Date: 20241120
  Transmission Date: 20250114
  Serious: Yes (Other)
  Sender: Public
  Company Number: None

PATIENT
  Age: 47 Year
  Sex: Female
  Weight: 89.55 kg

DRUGS (1)
  1. ZEPBOUND [Suspect]
     Active Substance: TIRZEPATIDE
     Indication: Weight decreased
     Dosage: OTHER QUANTITY : 1 INJECTION(S);?
     Route: 058
     Dates: start: 20241031, end: 20241114

REACTIONS (6)
  - Mental disorder [None]
  - Agitation [None]
  - Anger [None]
  - Anger [None]
  - Irritability [None]
  - Depression [None]

NARRATIVE: CASE EVENT DATE: 20241119
